FAERS Safety Report 8523185-4 (Version None)
Quarter: 2012Q3

REPORT INFORMATION
  Report Type: 
  Country: None (occurrence: None)
  Receive Date: 20120713
  Receipt Date: 20120713
  Transmission Date: 20120928
  Serious: Yes (Hospitalization)
  Sender: FDA-Public Use
  Company Number: None

PATIENT
  Age: 43 Year
  Sex: Female
  Weight: 99.7913 kg

DRUGS (1)
  1. LYRICA [Suspect]
     Indication: FIBROMYALGIA
     Dosage: WITHDRAWL FROM
     Dates: start: 20100105, end: 20120608

REACTIONS (4)
  - ABDOMINAL PAIN UPPER [None]
  - CHEST PAIN [None]
  - DYSPNOEA [None]
  - CONVULSION [None]
